FAERS Safety Report 7960032-3 (Version None)
Quarter: 2011Q4

REPORT INFORMATION
  Report Type: 
  Country: None (occurrence: None)
  Receive Date: 20111201
  Receipt Date: 20111115
  Transmission Date: 20120403
  Serious: Yes (Death)
  Sender: FDA-Public Use
  Company Number: 2009-024

PATIENT
  Age: 79 Year
  Sex: Male

DRUGS (1)
  1. FAZACLO ODT [Suspect]
     Dosage: 625 MG, QD, ORAL
     Route: 048
     Dates: start: 20081119, end: 20081229

REACTIONS (3)
  - CARDIAC FAILURE CONGESTIVE [None]
  - CHRONIC OBSTRUCTIVE PULMONARY DISEASE [None]
  - NERVOUS SYSTEM DISORDER [None]
